FAERS Safety Report 7629481-7 (Version None)
Quarter: 2011Q3

REPORT INFORMATION
  Report Type: 
  Country: None (occurrence: None)
  Receive Date: 20110715
  Receipt Date: 20110701
  Transmission Date: 20111222
  Serious: Yes (Hospitalization)
  Sender: FDA-Public Use
  Company Number: 2011-00640

PATIENT
  Age: 60 Year
  Sex: Male
  Weight: 89 kg

DRUGS (13)
  1. MEXILETINE HYDROCHLORIDE (MEXITIL) (UNKNOWN) [Suspect]
     Indication: PRODUCT USED FOR UNKNOWN INDICATION
     Dosage: 50MG X 6T X 3 (50 MG),ORAL
     Route: 048
     Dates: start: 20090511, end: 20110603
  2. EPINASTINE HYDROCHLORIDE [Suspect]
     Indication: PRODUCT USED FOR UNKNOWN INDICATION
     Dosage: (20 MG,1 IN 1 D),ORAL
     Route: 048
     Dates: start: 20110414, end: 20110603
  3. MAGNESIUM OXIDE (MAGMITT) (TABLETS) [Suspect]
     Indication: PRODUCT USED FOR UNKNOWN INDICATION
     Dosage: 250MG X 3T X 3 (250 MG),ORAL
     Route: 048
     Dates: start: 20090704, end: 20110531
  4. BISOPROLOL FUMARATE (MAINHEART) (UNKNOWN) [Suspect]
     Indication: PRODUCT USED FOR UNKNOWN INDICATION
     Dosage: 5 MG (2.5 MG,2 IN 1 D),ORAL
     Route: 048
     Dates: start: 20090627, end: 20110603
  5. WARFARIN SODIUM [Suspect]
     Indication: PRODUCT USED FOR UNKNOWN INDICATION
     Dosage: 4 MG (1 MG,4 IN 1 D),ORAL
     Route: 048
     Dates: start: 20090511, end: 20110531
  6. DOXAZOSIN MESILATE (CADEMESIN) (TABLETS) [Suspect]
     Indication: PRODUCT USED FOR UNKNOWN INDICATION
     Dosage: 4 MG (2 MG,2 IN 1 D),ORAL
     Route: 048
     Dates: start: 20090715, end: 20110603
  7. VALSARTAN [Suspect]
     Indication: PRODUCT USED FOR UNKNOWN INDICATION
     Dosage: 160 MG (80 MG,2 IN 1 D),ORAL
     Route: 048
     Dates: start: 20090511, end: 20110603
  8. MOSAPRIDE CITRATE/HYDRATE (GASMOTIN) (CAPSULES) [Suspect]
     Indication: PRODUCT USED FOR UNKNOWN INDICATION
     Dosage: 5MG X 3T X 3 (5 MG),ORAL
     Route: 048
     Dates: start: 20091202, end: 20110603
  9. MECOBALAMINE (BECOBALAMIN) (CAPSULES) [Suspect]
     Indication: PRODUCT USED FOR UNKNOWN INDICATION
     Dosage: 550UG X 3T X 3 (500 MCG),ORAL
     Route: 048
     Dates: start: 20100303, end: 20110603
  10. AMLODIPINE BESYLATE [Suspect]
     Indication: PRODUCT USED FOR UNKNOWN INDICATION
     Dosage: 5 MG (5 MG,1 IN 1 D),ORAL
     Route: 048
     Dates: start: 20090511, end: 20110603
  11. LANSOPRAZOLE [Suspect]
     Indication: PRODUCT USED FOR UNKNOWN INDICATION
     Dosage: 15 MG (15 MG,1 IN 1 D),ORAL
     Route: 048
     Dates: start: 20090511, end: 20110603
  12. PIRMENOL HYDROCHLORDIE/HYDRATE (PIMENOL) (CAPSULES) [Suspect]
     Indication: PRODUCT USED FOR UNKNOWN INDICATION
     Dosage: 50MG X 2CAPSULES X 2 (50 MG),ORAL
     Route: 048
     Dates: start: 20090511, end: 20110603
  13. SAIREI-TO (SAIREI-TO) (TABLETS) [Suspect]
     Indication: PRODUCT USED FOR UNKNOWN INDICATION
     Dosage: 8.1MG X 2T X 2 (8.1 MG),ORAL
     Route: 048
     Dates: start: 20100805, end: 20110530

REACTIONS (12)
  - PRURITUS GENERALISED [None]
  - BLOOD ALKALINE PHOSPHATASE INCREASED [None]
  - COLD SWEAT [None]
  - ALANINE AMINOTRANSFERASE INCREASED [None]
  - ASPARTATE AMINOTRANSFERASE INCREASED [None]
  - BACK PAIN [None]
  - MALAISE [None]
  - LIVER DISORDER [None]
  - DYSPNOEA EXERTIONAL [None]
  - COUGH [None]
  - GAMMA-GLUTAMYLTRANSFERASE INCREASED [None]
  - BLOOD LACTATE DEHYDROGENASE INCREASED [None]
